FAERS Safety Report 6688833-2 (Version None)
Quarter: 2010Q2

REPORT INFORMATION
  Report Type: 
  Country: None (occurrence: None)
  Receive Date: 20100413
  Receipt Date: 20100408
  Transmission Date: 20101027
  Serious: Yes (Hospitalization)
  Sender: FDA-Public Use
  Company Number: 2010SP020473

PATIENT
  Age: 52 Year
  Sex: Male

DRUGS (9)
  1. NASONEX [Suspect]
     Dosage: ; NAS
     Route: 045
     Dates: start: 20100301, end: 20100301
  2. PURINETHOL [Suspect]
     Indication: ACUTE MYELOID LEUKAEMIA
     Dosage: ; PO
     Route: 048
     Dates: end: 20100315
  3. METHOTREXATE [Suspect]
     Indication: ACUTE MYELOID LEUKAEMIA
     Dates: end: 20100312
  4. BACTRIM [Suspect]
     Indication: SINUSITIS
     Dosage: 3 DF; QW; PO
     Route: 048
     Dates: start: 20100215, end: 20100323
  5. VALACYCLOVIR HCL [Suspect]
     Indication: DRUG USE FOR UNKNOWN INDICATION
     Dosage: 1000 MG; QD;
     Dates: start: 20100215, end: 20100330
  6. AUGMENTIN '125' [Suspect]
     Indication: SINUSITIS
     Dosage: 2 GM; QD;
     Dates: start: 20100323, end: 20100330
  7. SOLUPRED (PREDNISOLONE SODIUM SULFOBENZOATE) [Suspect]
     Indication: DRUG USE FOR UNKNOWN INDICATION
     Dosage: 40 MG; QD; PO
     Route: 048
     Dates: start: 20100323, end: 20100325
  8. NEXIUM [Suspect]
     Indication: DRUG USE FOR UNKNOWN INDICATION
     Dates: start: 20090910, end: 20100330
  9. AMLODIPINE BESYLATE [Suspect]
     Indication: DRUG USE FOR UNKNOWN INDICATION
     Dates: end: 20090330

REACTIONS (4)
  - ACUTE SINUSITIS [None]
  - AGRANULOCYTOSIS [None]
  - HEPATITIS [None]
  - THROMBOCYTOPENIA [None]
